FAERS Safety Report 25423367 (Version 1)
Quarter: 2025Q2

REPORT INFORMATION
  Report Type: Spontaneous
  Country: US (occurrence: None)
  Receive Date: 20250610
  Receipt Date: 20250610
  Transmission Date: 20250717
  Serious: Yes (Life-Threatening)
  Sender: FDA-CTU
  Company Number: None

PATIENT
  Age: 7 Year
  Sex: Male
  Weight: 25.8 kg

DRUGS (2)
  1. CEFTRIAXONE [Suspect]
     Active Substance: CEFTRIAXONE
     Indication: Otitis media
     Route: 042
     Dates: start: 20250603, end: 20250603
  2. CEFTRIAXONE [Concomitant]
     Active Substance: CEFTRIAXONE
     Dates: start: 20250603, end: 20250603

REACTIONS (7)
  - Dyspnoea [None]
  - Urticaria [None]
  - Lip swelling [None]
  - Eye swelling [None]
  - Bradycardia [None]
  - Apnoea [None]
  - Anaphylactic shock [None]

NARRATIVE: CASE EVENT DATE: 20250603
